FAERS Safety Report 7908979-8 (Version None)
Quarter: 2011Q4

REPORT INFORMATION
  Report Type: 
  Country: None (occurrence: None)
  Receive Date: 20111111
  Receipt Date: 20111101
  Transmission Date: 20120403
  Serious: Yes (Hospitalization, Other)
  Sender: FDA-Public Use
  Company Number: PHHY2009GB16432

PATIENT
  Sex: Female

DRUGS (27)
  1. DIAZEPAM [Concomitant]
     Dosage: 5 MG, QD, MAX 20 MG IN 24 HOURS PRN
  2. CLOZARIL [Suspect]
     Indication: SCHIZOPHRENIA
     Dosage: 150 MG, UNK
     Route: 048
     Dates: start: 20080627
  3. VENLAFAXINE [Concomitant]
     Indication: DEPRESSED MOOD
     Dosage: 75 MG, TID
     Route: 048
     Dates: start: 20080501
  4. DOXYCYCLINE [Concomitant]
     Dosage: 100 MG, QD
     Dates: start: 20090701
  5. HALOPERIDOL [Concomitant]
     Dosage: 5 MG, BID, PRN
     Route: 030
  6. OMEPRAZOLE [Concomitant]
     Dosage: 20 MG, QD
     Dates: start: 20090701
  7. TEMAZEPAM [Concomitant]
     Dosage: 20 MG, QHS
     Dates: start: 20080501, end: 20080701
  8. FUSIDATE SODIUM [Concomitant]
     Dosage: 500 MG, TID
     Dates: start: 20090701
  9. HYOSCINE HYDROBROMIDE [Concomitant]
     Dosage: MAX OF 900 MCG IN 24 HOURS PRN
  10. GAVISCON [Concomitant]
     Dosage: MAX OF 40 MLS IN 24 HOURS PRN
  11. METOCLOPRAMIDE [Concomitant]
     Dosage: MAX 30 MGS IN 24 HOURS PRN
  12. CODEINE PHOSPHATE [Concomitant]
     Dosage: MAX 240 MGS IN 24 HOURS PRN
  13. CLOZARIL [Suspect]
     Indication: PERSONALITY DISORDER
     Dosage: 75 MG, BID
  14. BUPRENORPHINE [Concomitant]
     Dosage: 10 UG, QW
     Dates: start: 20090701
  15. PROMETHAZINE [Concomitant]
     Dosage: MAX 50 MGS IN 24 HOURS PRN
  16. DIAZEPAM [Concomitant]
     Dosage: 10 MG, TID
     Dates: start: 20080501, end: 20080701
  17. DICLOFENAC SODIUM [Concomitant]
     Dosage: MAX 150 MG IN 24 HOURS PRN
  18. HALOPERIDOL [Concomitant]
     Indication: AGGRESSION
     Dosage: 5 MG, BID, PRN
     Route: 048
  19. QUETIAPINE [Concomitant]
     Dosage: 200 MG, TID
     Dates: start: 20080501, end: 20080701
  20. LACTULOSE [Concomitant]
  21. PROMETHAZINE [Concomitant]
     Dosage: 20 MG, QHS
  22. VALPROATE SODIUM [Concomitant]
     Indication: AFFECTIVE DISORDER
     Dosage: 750 MG, TID
     Route: 048
     Dates: start: 20080501
  23. HYOSCINE HYDROBROMIDE [Concomitant]
     Dosage: 300 UG, TID
  24. GAVISCON [Concomitant]
     Dosage: 10 ML, QD
  25. METOCLOPRAMIDE [Concomitant]
     Dosage: 10 MG, TID
  26. CODEINE PHOSPHATE [Concomitant]
     Dosage: 60 MG, TID
  27. DICLOFENAC SODIUM [Concomitant]
     Dosage: 50 MG, TID

REACTIONS (23)
  - BLOOD ALKALINE PHOSPHATASE INCREASED [None]
  - VASCULAR PSEUDOANEURYSM [None]
  - PNEUMONIA BACTERIAL [None]
  - STAPHYLOCOCCAL INFECTION [None]
  - MOVEMENT DISORDER [None]
  - JOINT SWELLING [None]
  - LARYNGEAL STENOSIS [None]
  - C-REACTIVE PROTEIN INCREASED [None]
  - ELECTROCARDIOGRAM QT PROLONGED [None]
  - ANAEMIA OF CHRONIC DISEASE [None]
  - JOINT EFFUSION [None]
  - ARTHRALGIA [None]
  - PSEUDOMONAS INFECTION [None]
  - CEREBRAL ATROPHY [None]
  - SCHIZOPHRENIA [None]
  - TRACHEAL FISTULA [None]
  - ARTHRITIS BACTERIAL [None]
  - ACINETOBACTER INFECTION [None]
  - OSTEOMYELITIS [None]
  - EMPYEMA [None]
  - ANTIPSYCHOTIC DRUG LEVEL BELOW THERAPEUTIC [None]
  - DYSPNOEA [None]
  - STRIDOR [None]
